FAERS Safety Report 21233600 (Version 4)
Quarter: 2023Q2

REPORT INFORMATION
  Report Type: Spontaneous
  Country: BY (occurrence: BY)
  Receive Date: 20220819
  Receipt Date: 20230421
  Transmission Date: 20230721
  Serious: Yes (Life-Threatening, Hospitalization)
  Sender: FDA-Public Use
  Company Number: BY-JNJFOC-20220827971

PATIENT
  Age: 46 Year
  Sex: Male
  Weight: 58 kg

DRUGS (16)
  1. BEDAQUILINE [Suspect]
     Active Substance: BEDAQUILINE
     Indication: Tuberculosis
     Dosage: 2 WEEKS
     Route: 048
     Dates: start: 20220404
  2. BEDAQUILINE [Suspect]
     Active Substance: BEDAQUILINE
     Route: 048
     Dates: end: 20220816
  3. BEDAQUILINE [Suspect]
     Active Substance: BEDAQUILINE
     Route: 048
     Dates: end: 20221023
  4. PARA-AMINOSALICYLIC ACID [Suspect]
     Active Substance: AMINOSALICYLIC ACID
     Indication: Tuberculosis
     Route: 048
     Dates: start: 20220404, end: 20220816
  5. LINEZOLID [Suspect]
     Active Substance: LINEZOLID
     Indication: Tuberculosis
     Route: 048
     Dates: start: 20220404, end: 20220816
  6. MOXIFLOXACIN [Suspect]
     Active Substance: MOXIFLOXACIN
     Indication: Tuberculosis
     Route: 048
     Dates: start: 20220404, end: 20220506
  7. CLOFAZIMINE [Suspect]
     Active Substance: CLOFAZIMINE
     Indication: Tuberculosis
     Route: 048
     Dates: start: 20220506, end: 20220816
  8. DOLUTEGRAVIR [Concomitant]
     Active Substance: DOLUTEGRAVIR
     Indication: HIV infection
     Route: 048
     Dates: start: 20220328, end: 20220712
  9. DOLUTEGRAVIR [Concomitant]
     Active Substance: DOLUTEGRAVIR
     Route: 048
     Dates: start: 20220818
  10. TRUVADA [Concomitant]
     Active Substance: EMTRICITABINE\TENOFOVIR DISOPROXIL FUMARATE
     Indication: HIV infection
     Dosage: 300/200 MG
     Route: 048
     Dates: start: 20220328, end: 20220712
  11. COTRIMOXAZOLE [Concomitant]
     Active Substance: SULFAMETHOXAZOLE\TRIMETHOPRIM
     Indication: HIV infection
     Route: 048
     Dates: start: 20220328, end: 20220712
  12. LOPINAVIR\RITONAVIR [Concomitant]
     Active Substance: LOPINAVIR\RITONAVIR
     Indication: HIV infection
     Dosage: 200/50 MG
     Route: 048
     Dates: start: 20220818
  13. URSODIOL [Concomitant]
     Active Substance: URSODIOL
     Indication: Alcohol detoxification
  14. VITAMINS NOS [Concomitant]
     Active Substance: VITAMINS
     Indication: Alcohol detoxification
  15. LOPINAVIR [Concomitant]
     Active Substance: LOPINAVIR
  16. RITONAVIR [Concomitant]
     Active Substance: RITONAVIR

REACTIONS (3)
  - Aspartate aminotransferase increased [Recovered/Resolved]
  - Pancreatitis chronic [Recovered/Resolved]
  - Acute kidney injury [Recovering/Resolving]

NARRATIVE: CASE EVENT DATE: 20220712
